FAERS Safety Report 12293331 (Version 1)
Quarter: 2016Q2

REPORT INFORMATION
  Report Type: Spontaneous
  Country: US (occurrence: US)
  Receive Date: 20160421
  Receipt Date: 20160421
  Transmission Date: 20160815
  Serious: Yes (Other)
  Sender: FDA-Public Use
  Company Number: US-BIOGEN-2009BI011073

PATIENT
  Age: 46 Year
  Sex: Female
  Weight: 80.36 kg

DRUGS (1)
  1. AVONEX [Suspect]
     Active Substance: INTERFERON BETA-1A
     Indication: MULTIPLE SCLEROSIS
     Route: 030
     Dates: start: 20010810, end: 20060731

REACTIONS (6)
  - Drug intolerance [Unknown]
  - Malignant melanoma in situ [Not Recovered/Not Resolved]
  - Melanocytic naevus [Unknown]
  - Influenza like illness [Unknown]
  - Multiple sclerosis relapse [Recovered/Resolved]
  - Drug ineffective [Unknown]

NARRATIVE: CASE EVENT DATE: 20040401
